FAERS Safety Report 8658861 (Version 5)
Quarter: 2013Q2

REPORT INFORMATION
  Report Type: Spontaneous
  Country: US (occurrence: US)
  Receive Date: 20120710
  Receipt Date: 20130419
  Transmission Date: 20140414
  Serious: Yes (Hospitalization)
  Sender: FDA-Public Use
  Company Number: US-B.I. PHARMACEUTICALS,INC./RIDGEFIELD-2012-BP-15011BP

PATIENT
  Age: 78 Year
  Sex: Male
  Weight: 86.18 kg

DRUGS (16)
  1. PRADAXA [Suspect]
     Indication: ATRIAL FIBRILLATION
     Dosage: 300 MG
     Route: 048
     Dates: start: 20110614, end: 20120622
  2. LOSARTAN [Concomitant]
     Dosage: 100 MG
     Route: 048
  3. TOPROL [Concomitant]
     Dosage: 50 MG
     Route: 048
     Dates: start: 1999
  4. GLIPIZIDE ER [Concomitant]
     Indication: TYPE 2 DIABETES MELLITUS
     Route: 048
     Dates: start: 1999
  5. LEVOTHYROXINE [Concomitant]
     Indication: HYPOTHYROIDISM
     Dosage: 0.088 MG
     Route: 048
  6. ALLOPURINOL [Concomitant]
     Dosage: 300 MG
     Route: 048
  7. ATORVASTATIN [Concomitant]
     Indication: HYPERLIPIDAEMIA
     Dosage: 80 MG
     Route: 048
     Dates: start: 1999
  8. FISH OIL [Concomitant]
     Dosage: 1000 MG
     Route: 048
     Dates: end: 20120622
  9. MULTIGEN PLUS [Concomitant]
     Route: 048
     Dates: start: 1999
  10. COZAAR [Concomitant]
     Indication: HYPERTENSION
     Dosage: 100 MG
     Dates: start: 1999
  11. DIOVAN [Concomitant]
     Indication: HYPERTENSION
     Dosage: 80 MG
  12. SYNTHROID [Concomitant]
     Dosage: 50 MCG
  13. ULORIC [Concomitant]
     Dosage: 40 MCG
  14. VITAMIN D [Concomitant]
     Indication: VITAMIN D DEFICIENCY
     Dosage: 7142.8571 U
  15. CIALIS [Concomitant]
     Indication: ERECTILE DYSFUNCTION
  16. LISINOPRIL [Concomitant]
     Dosage: 5 MG

REACTIONS (8)
  - Subdural haematoma [Recovered/Resolved]
  - Haemorrhagic stroke [Unknown]
  - Amnesia [Unknown]
  - Vision blurred [Unknown]
  - Headache [Unknown]
  - Diarrhoea [Unknown]
  - Abdominal pain upper [Unknown]
  - Sudden onset of sleep [Unknown]
